FAERS Safety Report 24689859 (Version 1)
Quarter: 2024Q4

REPORT INFORMATION
  Report Type: Spontaneous
  Country: US (occurrence: US)
  Receive Date: 20241203
  Receipt Date: 20241203
  Transmission Date: 20250115
  Serious: No
  Sender: STRIDES
  Company Number: US-STRIDES ARCOLAB LIMITED-2024SP012049

PATIENT
  Age: 4 Decade
  Sex: Male

DRUGS (11)
  1. AMANTADINE [Suspect]
     Active Substance: AMANTADINE
     Indication: Neuroleptic malignant syndrome
     Dosage: 100 MILLIGRAM, BID, DURING HOSPITALISATION
     Route: 048
  2. AMANTADINE [Suspect]
     Active Substance: AMANTADINE
     Dosage: 200 MILLIGRAM, BID (TITRATED , DURING HOSPITALISATION)
     Route: 048
  3. AMANTADINE [Suspect]
     Active Substance: AMANTADINE
     Dosage: 100 MILLIGRAM, BID, DURING DISCHARGED
     Route: 048
  4. AMANTADINE [Suspect]
     Active Substance: AMANTADINE
     Dosage: UNK, PER THE RECOMMENDATIONS OF PSYCHIATRY
     Route: 065
  5. LEVETIRACETAM [Concomitant]
     Active Substance: LEVETIRACETAM
     Indication: Seizure
     Dosage: UNK
     Route: 065
  6. HALOPERIDOL DECANOATE [Concomitant]
     Active Substance: HALOPERIDOL DECANOATE
     Indication: Agitation
     Dosage: 150 MILLIGRAM
     Route: 030
  7. LORAZEPAM [Concomitant]
     Active Substance: LORAZEPAM
     Indication: Neuroleptic malignant syndrome
     Dosage: 1 MILLIGRAM, EVERY 4 HRS
     Route: 042
  8. LORAZEPAM [Concomitant]
     Active Substance: LORAZEPAM
     Dosage: 0.5 MILLIGRAM, QID (TRANSITIONED )
     Route: 042
  9. LORAZEPAM [Concomitant]
     Active Substance: LORAZEPAM
     Dosage: UNK, INITIATED PER THE RECOMMENDATIONS OF PSYCHIATRY
     Route: 065
  10. SODIUM CHLORIDE [Concomitant]
     Active Substance: SODIUM CHLORIDE
     Indication: Product used for unknown indication
     Dosage: 1000 MILLILITER, BOLUSES
     Route: 065
  11. FUROSEMIDE [Concomitant]
     Active Substance: FUROSEMIDE
     Indication: Acute kidney injury
     Dosage: 40 MILLIGRAM
     Route: 042

REACTIONS (1)
  - Off label use [Unknown]
